FAERS Safety Report 15370342 (Version 1)
Quarter: 2018Q3

REPORT INFORMATION
  Report Type: Spontaneous
  Country: US (occurrence: US)
  Receive Date: 20180904
  Receipt Date: 20180904
  Transmission Date: 20181010
  Serious: Yes (Hospitalization)
  Sender: FDA-Public Use
  Company Number: None

PATIENT
  Sex: Male

DRUGS (20)
  1. PERMETHRIN. [Concomitant]
     Active Substance: PERMETHRIN
  2. FLUTICASONE. [Concomitant]
     Active Substance: FLUTICASONE
  3. AMMONIUM LAC [Concomitant]
  4. TRIAMCINOLON [Concomitant]
  5. HYDROXYZ HCL [Concomitant]
     Active Substance: HYDROXYZINE HYDROCHLORIDE
  6. LORATADINE. [Concomitant]
     Active Substance: LORATADINE
  7. ESBRIET [Suspect]
     Active Substance: PIRFENIDONE
     Indication: IDIOPATHIC PULMONARY FIBROSIS
     Route: 048
     Dates: start: 20161103
  8. PROMETH/COD SOL [Concomitant]
  9. BYSTOLIC [Concomitant]
     Active Substance: NEBIVOLOL HYDROCHLORIDE
  10. OXYBUTYNIN. [Concomitant]
     Active Substance: OXYBUTYNIN CHLORIDE
  11. AUG BETAMET [Concomitant]
  12. OXYCODONE AND ACETAMINOPHEN [Concomitant]
     Active Substance: ACETAMINOPHEN\OXYCODONE HYDROCHLORIDE
  13. LUMIGAN [Concomitant]
     Active Substance: BIMATOPROST
  14. WARFARIN [Concomitant]
     Active Substance: WARFARIN
  15. TIZANIDINE. [Concomitant]
     Active Substance: TIZANIDINE
  16. MUPIROCIN. [Concomitant]
     Active Substance: MUPIROCIN
  17. ALBUTEROL. [Concomitant]
     Active Substance: ALBUTEROL
  18. TOPIRAMATE. [Concomitant]
     Active Substance: TOPIRAMATE
  19. FLECAINIDE [Concomitant]
     Active Substance: FLECAINIDE
  20. BETAMETH DIP CRE [Concomitant]

REACTIONS (1)
  - Lung disorder [None]
